FAERS Safety Report 22169130 (Version 2)
Quarter: 2023Q2

REPORT INFORMATION
  Report Type: Spontaneous
  Country: DE (occurrence: DE)
  Receive Date: 20230404
  Receipt Date: 20230506
  Transmission Date: 20230722
  Serious: Yes (Other)
  Sender: FDA-Public Use
  Company Number: DE-ROCHE-3314063

PATIENT
  Age: 60 Year
  Sex: Male

DRUGS (14)
  1. DOXORUBICIN [Suspect]
     Active Substance: DOXORUBICIN
     Indication: Diffuse large B-cell lymphoma
     Dosage: UNK (R-CHOP, FIRST LINE)
     Route: 065
     Dates: start: 20220601
  2. LENALIDOMIDE [Suspect]
     Active Substance: LENALIDOMIDE
     Indication: Diffuse large B-cell lymphoma
     Dosage: UNK
     Route: 065
     Dates: start: 20230316
  3. BENDAMUSTINE [Suspect]
     Active Substance: BENDAMUSTINE
     Indication: Diffuse large B-cell lymphoma
     Dosage: UNK (R-CHOP, FIRST LINE)
     Route: 065
     Dates: start: 20230202
  4. CYCLOPHOSPHAMIDE [Suspect]
     Active Substance: CYCLOPHOSPHAMIDE
     Indication: Diffuse large B-cell lymphoma
     Dosage: UNK (R-CHOP, FIRST LINE)
     Route: 065
     Dates: start: 20220601
  5. CISPLATIN [Suspect]
     Active Substance: CISPLATIN
     Indication: Diffuse large B-cell lymphoma
     Dosage: UNK (R-CHOP, FIRST LINE)
     Route: 065
     Dates: start: 20221201
  6. CYTARABINE [Suspect]
     Active Substance: CYTARABINE
     Indication: Diffuse large B-cell lymphoma
     Dosage: UNK (R-CHOP, FIRST LINE)
     Route: 065
     Dates: start: 20221201
  7. DEXAMETHASONE [Suspect]
     Active Substance: DEXAMETHASONE
     Indication: Diffuse large B-cell lymphoma
     Dosage: UNK (R-CHOP, FIRST LINE)
     Route: 065
     Dates: start: 20221201
  8. PREDNISONE [Suspect]
     Active Substance: PREDNISONE
     Indication: Diffuse large B-cell lymphoma
     Dosage: UNK (R-CHOP, FIRST LINE)
     Route: 065
     Dates: start: 20220601
  9. POLATUZUMAB VEDOTIN [Suspect]
     Active Substance: POLATUZUMAB VEDOTIN
     Indication: Diffuse large B-cell lymphoma
     Dosage: UNK (R-CHOP, FIRST LINE )
     Route: 065
     Dates: start: 20230202
  10. MABTHERA [Suspect]
     Active Substance: RITUXIMAB
     Indication: Diffuse large B-cell lymphoma
     Dosage: UNK (R-POLATUZMAB, BENDAMUSTINE, 3RD LINE)
     Route: 065
     Dates: start: 20230202, end: 20230314
  11. MABTHERA [Suspect]
     Active Substance: RITUXIMAB
     Dosage: UNK (R-CHOP, FIRST LINE)
     Route: 065
     Dates: start: 202206, end: 202211
  12. MABTHERA [Suspect]
     Active Substance: RITUXIMAB
     Dosage: UNK (R-DHAP, 2ND LINE, 2 CYCLES)
     Route: 065
     Dates: start: 202212, end: 202302
  13. TAFASITAMAB-CXIX [Suspect]
     Active Substance: TAFASITAMAB-CXIX
     Indication: Diffuse large B-cell lymphoma
     Dosage: UNK
     Route: 065
     Dates: start: 20230316
  14. VINCRISTINE [Suspect]
     Active Substance: VINCRISTINE
     Indication: Diffuse large B-cell lymphoma
     Dosage: UNK (R-CHOP, FIRST LINE)
     Route: 065
     Dates: start: 20220601

REACTIONS (3)
  - Infection [Recovering/Resolving]
  - Lymphoma [Not Recovered/Not Resolved]
  - Pneumonia [Recovering/Resolving]

NARRATIVE: CASE EVENT DATE: 20230315
